FAERS Safety Report 12538727 (Version 1)
Quarter: 2016Q3

REPORT INFORMATION
  Report Type: Spontaneous
  Country: ES (occurrence: ES)
  Receive Date: 20160708
  Receipt Date: 20160708
  Transmission Date: 20161109
  Serious: Yes (Other)
  Sender: FDA-Public Use
  Company Number: ES-009507513-1607ESP001626

PATIENT
  Sex: Female

DRUGS (4)
  1. ROCURONIUM BROMIDE. [Suspect]
     Active Substance: ROCURONIUM BROMIDE
     Indication: NEUROMUSCULAR BLOCKADE
     Dosage: 1 AMPOULE DURING THE INDUCTION
  2. BRIDION [Suspect]
     Active Substance: SUGAMMADEX
     Indication: NEUROMUSCULAR BLOCKADE REVERSAL
     Dosage: 500 MG, ONCE, AT APPROXIMATELY 8MG/KG
  3. ROCURONIUM BROMIDE. [Suspect]
     Active Substance: ROCURONIUM BROMIDE
     Dosage: 1 AMPOULE APPROXIMATELY EVERY HOUR AFTER THE FIRST DOSE ADMINISTERED (TOTAL 3-4), LAST ONE AT 13:15
  4. BRIDION [Suspect]
     Active Substance: SUGAMMADEX
     Dosage: 200 MG, ONCE

REACTIONS (2)
  - Endotracheal intubation [Recovered/Resolved]
  - Hypoxia [Recovered/Resolved]
